FAERS Safety Report 5134158-6 (Version None)
Quarter: 2006Q4

REPORT INFORMATION
  Report Type: 
  Country: None (occurrence: None)
  Receive Date: 20061024
  Receipt Date: 20061023
  Transmission Date: 20070319
  Serious: Yes (Other)
  Sender: FDA-Public Use
  Company Number: FR-BOEHRINGER INGELHEIM PHARMACEUTICALS, INC.-2006-DE-05569GD

PATIENT

DRUGS (3)
  1. CLONIDINE [Suspect]
     Indication: SPINAL ANAESTHESIA
  2. BUPIVACAINE [Suspect]
     Indication: SPINAL ANAESTHESIA
  3. ATROPINE [Concomitant]
     Indication: ANAESTHETIC PREMEDICATION
     Route: 054

REACTIONS (2)
  - ANAESTHETIC COMPLICATION [None]
  - RESPIRATORY FAILURE [None]
